FAERS Safety Report 8097586-5 (Version None)
Quarter: 2012Q1

REPORT INFORMATION
  Report Type: 
  Country: None (occurrence: None)
  Receive Date: 20120128
  Receipt Date: 20110617
  Transmission Date: 20120608
  Serious: No
  Sender: FDA-Public Use
  Company Number: US-ABBOTT-11P-163-0733895-00

PATIENT
  Sex: Female
  Weight: 120.31 kg

DRUGS (6)
  1. PREDNISONE TAB [Concomitant]
     Indication: RHEUMATOID ARTHRITIS
  2. HUMIRA [Suspect]
     Indication: RHEUMATOID ARTHRITIS
     Route: 058
     Dates: start: 20081001
  3. MELOXICAM [Concomitant]
     Indication: RHEUMATOID ARTHRITIS
  4. METHOTREXATE [Concomitant]
     Indication: RHEUMATOID ARTHRITIS
     Dosage: 4 TABS ON WEDNESDAY.
  5. FOLIC ACID [Concomitant]
     Indication: RHEUMATOID ARTHRITIS
  6. CPAP [Concomitant]
     Indication: SLEEP APNOEA SYNDROME
     Dosage: AT NIGHT.

REACTIONS (3)
  - ALOPECIA [None]
  - RHEUMATOID ARTHRITIS [None]
  - ARTHRALGIA [None]
